FAERS Safety Report 24959661 (Version 4)
Quarter: 2025Q2

REPORT INFORMATION
  Report Type: Spontaneous
  Country: FR (occurrence: FR)
  Receive Date: 20250212
  Receipt Date: 20250410
  Transmission Date: 20250717
  Serious: No
  Sender: TOLMAR
  Company Number: FR-RECORDATI-2025000371

PATIENT
  Age: 79 Year
  Sex: Male

DRUGS (1)
  1. ELIGARD [Suspect]
     Active Substance: LEUPROLIDE ACETATE
     Indication: Product used for unknown indication
     Dates: start: 20250118

REACTIONS (2)
  - Intercepted product administration error [Unknown]
  - Device issue [Unknown]

NARRATIVE: CASE EVENT DATE: 20250118
